FAERS Safety Report 4601941-2 (Version None)
Quarter: 2005Q1

REPORT INFORMATION
  Report Type: 
  Country: None (occurrence: None)
  Receive Date: 20050201
  Receipt Date: 20040209
  Transmission Date: 20050727
  Serious: Yes (Other)
  Sender: FDA-Public Use
  Company Number: 200412445BWH

PATIENT
  Age: 46 Year
  Sex: Female

DRUGS (8)
  1. AVELOX [Suspect]
     Indication: SINUSITIS
     Dosage: 400 MG, TOTAL DAILY, ORAL
     Route: 048
     Dates: start: 20040130, end: 20040131
  2. PRAVACHOL [Concomitant]
  3. DIOVAN [Concomitant]
  4. SYNTHROID [Concomitant]
  5. ALLEGRA-D / OLD FORM/ [Concomitant]
  6. CELEBREX [Concomitant]
  7. ZITHROMAX [Concomitant]
  8. DECONGESTANT [Concomitant]

REACTIONS (6)
  - ANGIONEUROTIC OEDEMA [None]
  - DIZZINESS [None]
  - HYPOAESTHESIA [None]
  - LOCAL SWELLING [None]
  - NAUSEA [None]
  - SWELLING FACE [None]
